FAERS Safety Report 10783759 (Version 2)
Quarter: 2016Q1

REPORT INFORMATION
  Report Type: Report from Study
  Country: JP (occurrence: JP)
  Receive Date: 20150210
  Receipt Date: 20160303
  Transmission Date: 20160525
  Serious: Yes (Other)
  Sender: FDA-Public Use
  Company Number: JP-009507513-1502JPN003471

PATIENT
  Age: 63 Year
  Sex: Female
  Weight: 66 kg

DRUGS (5)
  1. RIBAVIRIN. [Suspect]
     Active Substance: RIBAVIRIN
     Indication: CHRONIC HEPATITIS C
     Dosage: 600 MG, QD
     Route: 048
     Dates: start: 20140811, end: 20150126
  2. SIMEPREVIR [Suspect]
     Active Substance: SIMEPREVIR
     Indication: CHRONIC HEPATITIS C
     Dosage: 100 MG, QD
     Route: 048
     Dates: start: 20140811, end: 20141103
  3. PEGINTRON [Suspect]
     Active Substance: PEGINTERFERON ALFA-2B
     Dosage: TOTAL DAILY DOSE: 0.8 MICROGRAM PER KILOGRAM, QW
     Route: 058
     Dates: start: 20140901
  4. PEGINTRON [Suspect]
     Active Substance: PEGINTERFERON ALFA-2B
     Indication: CHRONIC HEPATITIS C
     Dosage: TOTAL DAILY DOSE: 1.2 MICROGRAM PER KILOGRAM, QW
     Route: 058
     Dates: start: 20140811
  5. PEGINTRON [Suspect]
     Active Substance: PEGINTERFERON ALFA-2B
     Dosage: TOTAL DAILY DOSE: 0.6 MICROGRAM PER KILOGRAM, QW
     Route: 058
     Dates: start: 20140818, end: 20140825

REACTIONS (4)
  - Platelet count decreased [Recovered/Resolved]
  - Nausea [Unknown]
  - Arthralgia [Recovering/Resolving]
  - Myalgia [Recovered/Resolved]

NARRATIVE: CASE EVENT DATE: 20140811
